FAERS Safety Report 9231779 (Version 2)
Quarter: 2013Q3

REPORT INFORMATION
  Report Type: Spontaneous
  Country: FR (occurrence: FR)
  Receive Date: 20130415
  Receipt Date: 20130902
  Transmission Date: 20140515
  Serious: Yes (Hospitalization)
  Sender: FDA-Public Use
  Company Number: FR-ROCHE-1214052

PATIENT
  Age: 66 Year
  Sex: Female

DRUGS (7)
  1. PEGASYS [Suspect]
     Indication: HEPATITIS C
     Route: 065
     Dates: start: 201107, end: 201207
  2. REBETOL [Suspect]
     Indication: HEPATITIS C
     Route: 065
     Dates: start: 201107, end: 201207
  3. LASIX [Concomitant]
     Route: 065
  4. TRIATEC (RAMIPRIL) [Concomitant]
     Route: 065
  5. CARDENSIEL [Concomitant]
     Route: 065
  6. LEVOTHYROX [Concomitant]
     Route: 065
  7. PRADAXA [Concomitant]
     Route: 065

REACTIONS (3)
  - Cardiomyopathy [Unknown]
  - Dyspnoea [Unknown]
  - Chest pain [Unknown]
